FAERS Safety Report 9541665 (Version 1)
Quarter: 2013Q3

REPORT INFORMATION
  Report Type: Spontaneous
  Country: US (occurrence: None)
  Receive Date: 20130919
  Receipt Date: 20130919
  Transmission Date: 20140515
  Serious: Yes (Hospitalization, Other)
  Sender: FDA-Public Use
  Company Number: None

PATIENT
  Age: 58 Year
  Sex: Female
  Weight: 52 kg

DRUGS (2)
  1. CLOPIDOGREL [Suspect]
     Indication: THERAPEUTIC PROCEDURE
     Dosage: 600 MG ORAL
     Route: 048
     Dates: start: 20130904, end: 20130904
  2. CLOPIDOGREL [Suspect]
     Dosage: 75 MG BID ORAL
     Route: 048
     Dates: start: 20130904, end: 20130905

REACTIONS (1)
  - Stevens-Johnson syndrome [None]
